FAERS Safety Report 7331163-6 (Version None)
Quarter: 2011Q1

REPORT INFORMATION
  Report Type: 
  Country: None (occurrence: None)
  Receive Date: 20110304
  Receipt Date: 20110224
  Transmission Date: 20110831
  Serious: Yes (Other)
  Sender: FDA-Public Use
  Company Number: JP-BRISTOL-MYERS SQUIBB COMPANY-14635452

PATIENT
  Age: 43 Year
  Sex: Male
  Weight: 49 kg

DRUGS (37)
  1. GENINAX [Concomitant]
     Dosage: 12MAY09 - 28MAY09 09JUN09 - 11JUN09
     Route: 048
     Dates: start: 20090512
  2. CYANOCOBALAMIN + THIAMINE [Concomitant]
     Dosage: 18MAY09 - 20MAY09 30MAY09 - 30MAY09
     Dates: start: 20090518, end: 20090530
  3. VALACYCLOVIR HYDROCHLORIDE [Concomitant]
     Route: 048
     Dates: start: 20090602, end: 20090611
  4. ENDOXAN [Suspect]
     Route: 041
     Dates: start: 20090512, end: 20090514
  5. ACETAMINOPHEN [Concomitant]
     Dosage: GIVEN ON 20MAY09,29MAY,31MAY,2JUN09,5JUN09-11JUN09
     Dates: start: 20090520, end: 20090611
  6. SODIUM BICARBONATE [Concomitant]
     Dosage: INJ
     Route: 042
     Dates: start: 20090512, end: 20090515
  7. ITRIZOLE [Concomitant]
     Dosage: 12MAY09 - 21MAY09 23MAY09 TO ONGOING
     Route: 048
     Dates: start: 20090512
  8. MAGNESIUM OXIDE [Concomitant]
     Indication: PROPHYLAXIS
     Route: 048
     Dates: start: 20090526
  9. SENNOSIDE A+B [Concomitant]
     Route: 048
     Dates: start: 20090526, end: 20090526
  10. PYRIDOXINE HCL [Concomitant]
     Dosage: 18MAY09 - 20MAY09 30MAY09 - 30MAY09
     Dates: start: 20090518
  11. LASIX [Suspect]
     Dosage: 1DF-20-40 MG
     Route: 042
     Dates: start: 20090515, end: 20090517
  12. OMEPRAL [Concomitant]
     Route: 048
     Dates: start: 20090512
  13. SULFAMETHOXAZOLE AND TRIMETHOPRIM [Concomitant]
     Dates: start: 20090512, end: 20090512
  14. KOLANTYL [Concomitant]
     Indication: PROPHYLAXIS
     Dosage: GRANULES 1GRAM/DAY
     Route: 048
     Dates: start: 20090513, end: 20090513
  15. LIDOCAINE + TRIBENOSIDE [Concomitant]
     Route: 062
     Dates: start: 20090513, end: 20090516
  16. GRANISETRON HCL [Concomitant]
     Dates: start: 20090512, end: 20090515
  17. DANAPAROID SODIUM [Concomitant]
     Dates: start: 20090515, end: 20090520
  18. MORPHINE HCL ELIXIR [Concomitant]
     Route: 048
     Dates: start: 20090527, end: 20090527
  19. HYDROXYZINE HCL [Concomitant]
     Dosage: INJ
     Route: 042
     Dates: start: 20090527, end: 20090527
  20. ONCOVIN [Suspect]
     Dosage: GIVEN ON 15 AND 22 MAY 09
     Route: 042
     Dates: start: 20090515, end: 20090522
  21. ADRIACIN [Suspect]
     Route: 042
     Dates: start: 20090515, end: 20090515
  22. DEXCHLORPHENIRAMINE MALEATE [Concomitant]
     Dates: start: 20090516, end: 20090524
  23. SCOPOLAMINE BUTYLBROMIDE [Concomitant]
     Dosage: 13MAY09 - 13MAY09 27MAY09 - 27MAY09 INJ
     Route: 042
     Dates: start: 20090513, end: 20090527
  24. PROCHLORPERAZINE MESYLATE [Concomitant]
     Route: 042
     Dates: start: 20090515, end: 20090515
  25. SODIUM GUALENATE [Concomitant]
     Route: 048
     Dates: start: 20090528, end: 20090531
  26. LIDOCAINE [Concomitant]
     Dosage: SOLN
     Dates: start: 20090528, end: 20090531
  27. MEROPENEM [Concomitant]
     Dosage: INJ
     Route: 042
     Dates: start: 20090528, end: 20090608
  28. SPRYCEL [Suspect]
     Indication: ACUTE LYMPHOCYTIC LEUKAEMIA
     Dosage: INTERRUPTED 13MAY2009
     Route: 048
     Dates: start: 20090512, end: 20090515
  29. ALOSITOL [Concomitant]
     Route: 048
     Dates: start: 20090512, end: 20090521
  30. METOCLOPRAMIDE HCL [Concomitant]
     Indication: PROPHYLAXIS
     Dosage: 13MAY09 - 13MAY09-2 ML/DAY 26MAY09-
     Route: 048
     Dates: start: 20090526
  31. OXETHAZAINE [Concomitant]
     Dosage: 13MAY09 - 13MAY09 26MAY09 - 26MAY09
     Route: 048
     Dates: start: 20090513, end: 20090526
  32. PENTAZOCINE LACTATE [Concomitant]
     Dosage: 13MAY09 - 13MAY09 25MAY09 - 25MAY09.INJ
     Route: 042
     Dates: start: 20090513, end: 20090525
  33. DEXAMETHASONE [Concomitant]
     Dosage: 12MAY09 - 15MAY09 22MAY09 - 25MAY09
     Route: 065
     Dates: start: 20090512
  34. DECADRON [Concomitant]
     Route: 048
  35. POTASSIUM CHLORIDE [Concomitant]
     Dosage: TABS.20ML/DAY:19MAY09-20MAY09
     Route: 048
     Dates: start: 20090516, end: 20090517
  36. TANNALBIN [Concomitant]
     Indication: PROPHYLAXIS
     Dosage: GRANULES 1GRAM/DAY
     Route: 048
     Dates: start: 20090514, end: 20090514
  37. FILGRASTIM [Concomitant]
     Dosage: INJ
     Route: 042
     Dates: start: 20090526, end: 20090531

REACTIONS (13)
  - TUMOUR LYSIS SYNDROME [None]
  - GASTROINTESTINAL MUCOSAL DISORDER [None]
  - HYPOKALAEMIA [None]
  - CONSTIPATION [None]
  - PULMONARY OEDEMA [None]
  - ANAEMIA [None]
  - CARDIAC FAILURE [None]
  - WHITE BLOOD CELL COUNT DECREASED [None]
  - PLATELET COUNT DECREASED [None]
  - CYSTITIS HAEMORRHAGIC [None]
  - HERPES ZOSTER [None]
  - ATRIAL FIBRILLATION [None]
  - NEUTROPHIL COUNT DECREASED [None]
